FAERS Safety Report 10162960 (Version 2)
Quarter: 2014Q2

REPORT INFORMATION
  Report Type: Spontaneous
  Country: US (occurrence: US)
  Receive Date: 20140509
  Receipt Date: 20140612
  Transmission Date: 20141212
  Serious: No
  Sender: FDA-Public Use
  Company Number: US-PFIZER INC-2014126416

PATIENT
  Age: 34 Year
  Sex: Female
  Weight: 68.03 kg

DRUGS (4)
  1. CHANTIX [Suspect]
     Indication: SMOKING CESSATION THERAPY
     Dosage: 1 MG, 2X/DAY
     Route: 048
     Dates: start: 20140501
  2. BENTYL [Suspect]
     Indication: IRRITABLE BOWEL SYNDROME
     Dosage: 10 MG, UNK
  3. XANAX [Concomitant]
     Dosage: 1 MG, 2X/DAY
  4. IBUPROFEN [Concomitant]
     Dosage: 800 MG, UNK

REACTIONS (1)
  - Nausea [Unknown]
